FAERS Safety Report 14658511 (Version 3)
Quarter: 2022Q1

REPORT INFORMATION
  Report Type: Spontaneous
  Country: US (occurrence: US)
  Receive Date: 20180320
  Receipt Date: 20220323
  Transmission Date: 20220423
  Serious: Yes (Other)
  Sender: FDA-Public Use
  Company Number: US-PFIZER INC-2018111755

PATIENT
  Age: 60 Year
  Sex: Female
  Weight: 104.33 kg

DRUGS (2)
  1. XANAX [Suspect]
     Active Substance: ALPRAZOLAM
     Indication: Panic attack
     Dosage: 4 MG, 1X/DAY
  2. XANAX [Suspect]
     Active Substance: ALPRAZOLAM
     Dosage: 1 MG

REACTIONS (4)
  - Anaphylactic shock [Unknown]
  - Headache [Recovering/Resolving]
  - Illness [Unknown]
  - Therapeutic product effect incomplete [Unknown]
